FAERS Safety Report 9849426 (Version 1)
Quarter: 2014Q1

REPORT INFORMATION
  Report Type: Spontaneous
  Country: US (occurrence: None)
  Receive Date: 20140124
  Receipt Date: 20140124
  Transmission Date: 20141002
  Serious: Yes (Other)
  Sender: FDA-Public Use
  Company Number: None

PATIENT
  Age: 81 Year
  Sex: Male
  Weight: 77.11 kg

DRUGS (1)
  1. LEVETIRACETAM [Suspect]
     Indication: CONVULSION
     Dosage: STARTED 500 NOW 250?500 PILL CUT IN HALF- 1/2 IN AM -2 IN PM?1/2 IN A.M. 1/2 IN P.M. ?MOUTH
     Route: 048
     Dates: start: 20131121

REACTIONS (2)
  - Gait disturbance [None]
  - Feeling abnormal [None]
